APPROVED DRUG PRODUCT: SUCCINYLCHOLINE CHLORIDE
Active Ingredient: SUCCINYLCHOLINE CHLORIDE
Strength: 100MG/VIAL
Dosage Form/Route: INJECTABLE;INJECTION
Application: A085400 | Product #001
Applicant: INTERNATIONAL MEDICATION SYSTEMS LTD
Approved: Feb 4, 1982 | RLD: No | RS: No | Type: DISCN